FAERS Safety Report 7167224-4 (Version None)
Quarter: 2010Q4

REPORT INFORMATION
  Report Type: 
  Country: None (occurrence: None)
  Receive Date: 20101202
  Receipt Date: 20101120
  Transmission Date: 20110411
  Serious: Yes (Hospitalization, Other)
  Sender: FDA-Public Use
  Company Number: 2010AP002502

PATIENT
  Age: 40 Year
  Sex: Female

DRUGS (1)
  1. ZOLPIDEM TARTRATE [Suspect]
     Indication: DEPRESSION
     Dosage: 10 MG;

REACTIONS (7)
  - AREFLEXIA [None]
  - BRAIN STEM SYNDROME [None]
  - COMA [None]
  - LOSS OF CONSCIOUSNESS [None]
  - MYDRIASIS [None]
  - OVERDOSE [None]
  - PUPILLARY LIGHT REFLEX TESTS ABNORMAL [None]
